FAERS Safety Report 13775031 (Version 2)
Quarter: 2017Q3

REPORT INFORMATION
  Report Type: Report from Study
  Country: US (occurrence: US)
  Receive Date: 20170721
  Receipt Date: 20170807
  Transmission Date: 20171127
  Serious: Yes (Hospitalization, Other)
  Sender: FDA-Public Use
  Company Number: US-PFIZER INC-2011250416

PATIENT
  Age: 80 Year
  Sex: Female
  Weight: 73.16 kg

DRUGS (17)
  1. NEURONTIN [Suspect]
     Active Substance: GABAPENTIN
     Indication: SEIZURE
     Dosage: UNK
     Dates: start: 1997
  2. IMMODIN [Concomitant]
     Dosage: UNK
  3. LEXAPRO [Concomitant]
     Active Substance: ESCITALOPRAM OXALATE
     Indication: NERVOUS SYSTEM DISORDER
     Dosage: 20 MG, 1X/DAY (AT NIGHT)
  4. ULORIC [Concomitant]
     Active Substance: FEBUXOSTAT
     Indication: GOUT
     Dosage: 40 MG, 2X/DAY
  5. ZONISAMIDE. [Concomitant]
     Active Substance: ZONISAMIDE
     Indication: SEIZURE
     Dosage: 200 MG, 1X/DAY (AT NIGHT)
  6. LOPERAMIDE [Concomitant]
     Active Substance: LOPERAMIDE
     Indication: DIARRHOEA
     Dosage: 2 MG, 1X/DAY
  7. PERCOCET [Concomitant]
     Active Substance: ACETAMINOPHEN\OXYCODONE HYDROCHLORIDE
     Indication: PAIN
     Dosage: 2.5 MG, AS NEEDED
  8. PENICILLIN /00000901/ [Concomitant]
     Active Substance: PENICILLIN G
     Indication: TOOTH ABSCESS
  9. VITAMIN D [Concomitant]
     Active Substance: CHOLECALCIFEROL
     Dosage: 1000 TWO TIMES PER DAY
  10. ATENOLOL. [Concomitant]
     Active Substance: ATENOLOL
     Indication: BLOOD PRESSURE ABNORMAL
     Dosage: 50 MG, 1X/DAY
  11. CALCIUM [Concomitant]
     Active Substance: CALCIUM
     Dosage: 100, 1X/DAY
  12. GABAPENTIN. [Suspect]
     Active Substance: GABAPENTIN
     Indication: SEIZURE
     Dosage: 900 MG, 3X/DAY(100MG CAPSULE AND THE 800MG IS A BIG PILL)
     Route: 048
  13. HYDROCHLOROTHIAZIDE. [Concomitant]
     Active Substance: HYDROCHLOROTHIAZIDE
     Indication: DIURETIC THERAPY
     Dosage: 25 MG, AS NEEDED (TAKES MAYBE ONCE A WEEK)
  14. COENZYME Q10 [Concomitant]
     Active Substance: UBIDECARENONE
     Dosage: 1 DF, 1X/DAY
  15. NEURONTIN [Suspect]
     Active Substance: GABAPENTIN
     Dosage: 800 MG, 2X/DAY
     Route: 048
  16. ELIQUIS [Concomitant]
     Active Substance: APIXABAN
     Indication: FACTOR V DEFICIENCY
     Dosage: 2.5 MG, 2X/DAY (HAS BEEN TAKING FOR ABOUT A YEAR)
  17. OXYBUTYNIN [Concomitant]
     Active Substance: OXYBUTYNIN
     Indication: INCONTINENCE
     Dosage: 10 MG, 1X/DAY

REACTIONS (12)
  - Seizure [Unknown]
  - Ankle fracture [Recovering/Resolving]
  - Fall [Unknown]
  - Pruritus [Unknown]
  - Fibromyalgia [Unknown]
  - Drug hypersensitivity [Unknown]
  - Foot fracture [Unknown]
  - Rash erythematous [Unknown]
  - Weight decreased [Unknown]
  - Nephrolithiasis [Unknown]
  - Dermatitis allergic [Unknown]
  - Stress [Unknown]

NARRATIVE: CASE EVENT DATE: 20170604
